FAERS Safety Report 22098608 (Version 1)
Quarter: 2023Q1

REPORT INFORMATION
  Report Type: Spontaneous
  Country: US (occurrence: None)
  Receive Date: 20230314
  Receipt Date: 20230314
  Transmission Date: 20230418
  Serious: Yes (Hospitalization, Other)
  Sender: FDA-Public Use
  Company Number: None

PATIENT
  Age: 38 Year
  Sex: Female
  Weight: 100.5 kg

DRUGS (1)
  1. VANCOMYCIN [Suspect]
     Active Substance: VANCOMYCIN
     Indication: Calciphylaxis
     Dosage: OTHER FREQUENCY : ONCE POST DIALYSIS;?
     Route: 041
     Dates: start: 20230303, end: 20230303

REACTIONS (6)
  - Dialysis [None]
  - Vomiting [None]
  - Hot flush [None]
  - Pruritus [None]
  - Chest discomfort [None]
  - Infusion related reaction [None]

NARRATIVE: CASE EVENT DATE: 20230303
